FAERS Safety Report 21824984 (Version 1)
Quarter: 2023Q1

REPORT INFORMATION
  Report Type: Spontaneous
  Country: NL (occurrence: NL)
  Receive Date: 20230105
  Receipt Date: 20230105
  Transmission Date: 20230417
  Serious: Yes (Hospitalization, Other)
  Sender: FDA-Public Use
  Company Number: None

PATIENT
  Sex: Female
  Weight: 72 kg

DRUGS (4)
  1. OXYCODONE HYDROCHLORIDE [Suspect]
     Active Substance: OXYCODONE HYDROCHLORIDE
     Indication: Pain
     Dosage: END DATE: ASKU / BRAND NAME NOT SPECIFIED
     Route: 065
     Dates: start: 20220701
  2. OXAZEPAM [Concomitant]
     Active Substance: OXAZEPAM
     Indication: Product used for unknown indication
     Dosage: END DATE: ASKU/ BRAND NAME NOT SPECIFIED
     Dates: start: 20211011
  3. PAROXETINE [Concomitant]
     Active Substance: PAROXETINE
     Indication: Product used for unknown indication
     Dosage: END DATE: ASKU/ BRAND NAME NOT SPECIFIED
     Dates: start: 20211011
  4. ZOLPIDEM [Concomitant]
     Active Substance: ZOLPIDEM TARTRATE
     Indication: Product used for unknown indication
     Dosage: END DATE: ASKU / BRAND NAME NOT SPECIFIED
     Dates: start: 20211011

REACTIONS (3)
  - Concussion [Recovering/Resolving]
  - Walking disability [Recovering/Resolving]
  - Balance disorder [Recovering/Resolving]
